FAERS Safety Report 14423940 (Version 1)
Quarter: 2018Q1

REPORT INFORMATION
  Report Type: Spontaneous
  Country: US (occurrence: US)
  Receive Date: 20180122
  Receipt Date: 20180122
  Transmission Date: 20180509
  Serious: No
  Sender: FDA-Public Use
  Company Number: None

PATIENT
  Sex: Male
  Weight: 97.52 kg

DRUGS (1)
  1. HYDROCODONE [Suspect]
     Active Substance: HYDROCODONE
     Dosage: DATES OF USE - 15SEP2017 - OFF AND ON?DOSE - 4 TIMES A DAY (10/325 DF)
     Route: 048
     Dates: start: 20170915

REACTIONS (3)
  - Hangover [None]
  - Extra dose administered [None]
  - Headache [None]
